FAERS Safety Report 8470636-X (Version None)
Quarter: 2012Q2

REPORT INFORMATION
  Report Type: 
  Country: None (occurrence: None)
  Receive Date: 20120627
  Receipt Date: 20120620
  Transmission Date: 20120825
  Serious: Yes (Hospitalization)
  Sender: FDA-Public Use
  Company Number: IT-SANOFI-AVENTIS-2012SA043979

PATIENT
  Age: 81 Year
  Sex: Female

DRUGS (5)
  1. ALLOPURINOL [Concomitant]
     Dosage: DOSE: 1 POSOLOGICAL UNIT
     Route: 048
     Dates: start: 20110427, end: 20120426
  2. RAMIPRIL [Concomitant]
     Route: 048
     Dates: start: 20110427, end: 20120426
  3. LASIX [Suspect]
     Dosage: DAILY-DOSE- 3 POSOLOGICAL UNIT
     Route: 048
     Dates: start: 20110427, end: 20120426
  4. TEGRETOL [Concomitant]
     Route: 048
     Dates: start: 20110427, end: 20120426
  5. LUVION [Suspect]
     Route: 048
     Dates: start: 20110427, end: 20120426

REACTIONS (2)
  - SYNCOPE [None]
  - DEHYDRATION [None]
